FAERS Safety Report 13532969 (Version 1)
Quarter: 2017Q2

REPORT INFORMATION
  Report Type: Spontaneous
  Country: US (occurrence: US)
  Receive Date: 20170510
  Receipt Date: 20170510
  Transmission Date: 20170830
  Serious: Yes (Death)
  Sender: FDA-Public Use
  Company Number: US-SA-2017SA083482

PATIENT
  Age: 59 Year
  Sex: Male

DRUGS (6)
  1. CLOFARABINE. [Suspect]
     Active Substance: CLOFARABINE
     Indication: LEUKAEMIA CUTIS
     Route: 065
  2. CYTARABINE. [Suspect]
     Active Substance: CYTARABINE
     Indication: LANGERHANS^ CELL HISTIOCYTOSIS
     Dosage: DOSE:1 GRAM(S)/SQUARE METER
     Route: 065
  3. IDARUBICIN [Suspect]
     Active Substance: IDARUBICIN
     Indication: LEUKAEMIA CUTIS
     Route: 065
  4. CLOFARABINE. [Suspect]
     Active Substance: CLOFARABINE
     Indication: LANGERHANS^ CELL HISTIOCYTOSIS
     Route: 065
  5. IDARUBICIN [Suspect]
     Active Substance: IDARUBICIN
     Indication: LANGERHANS^ CELL HISTIOCYTOSIS
     Route: 065
  6. CYTARABINE. [Suspect]
     Active Substance: CYTARABINE
     Indication: LEUKAEMIA CUTIS
     Dosage: DOSE:1 GRAM(S)/SQUARE METER
     Route: 065

REACTIONS (5)
  - Off label use [Unknown]
  - Pneumonitis [Fatal]
  - Pulmonary haemorrhage [Fatal]
  - Sepsis [Fatal]
  - Pancytopenia [Fatal]
